FAERS Safety Report 9932805 (Version 1)
Quarter: 2014Q1

REPORT INFORMATION
  Report Type: Spontaneous
  Country: US (occurrence: US)
  Receive Date: 20140228
  Receipt Date: 20140228
  Transmission Date: 20141002
  Serious: No
  Sender: FDA-Public Use
  Company Number: US-ABBVIE-13P-163-1057828-00

PATIENT
  Sex: Male
  Weight: 77.18 kg

DRUGS (4)
  1. ANDROGEL 1% [Suspect]
     Indication: BLOOD TESTOSTERONE DECREASED
     Dosage: 2 PUMPS
     Route: 061
  2. ANDROGEL 1.62% [Suspect]
     Indication: BLOOD TESTOSTERONE DECREASED
     Dosage: 2 PUMPS
     Route: 061
     Dates: start: 201209, end: 201212
  3. ANDROGEL 1.62% [Suspect]
     Dosage: 4 PUMPS
     Dates: start: 201212, end: 201302
  4. BUPRENORPHINE [Concomitant]
     Indication: DRUG DEPENDENCE
     Dosage: UNKNOWN

REACTIONS (1)
  - Drug ineffective [Not Recovered/Not Resolved]
